FAERS Safety Report 15259017 (Version 1)
Quarter: 2018Q3

REPORT INFORMATION
  Report Type: Spontaneous
  Country: US (occurrence: US)
  Receive Date: 20180718
  Receipt Date: 20180718
  Transmission Date: 20181010
  Serious: Yes (Life-Threatening, Hospitalization)
  Sender: FDA-Public Use
  Company Number: None

PATIENT
  Age: 32 Year
  Sex: Female
  Weight: 62.14 kg

DRUGS (1)
  1. MIRENA [Suspect]
     Active Substance: LEVONORGESTREL
     Dates: start: 20140602, end: 20180622

REACTIONS (3)
  - Ectopic pregnancy with contraceptive device [None]
  - Emotional distress [None]
  - Abortion of ectopic pregnancy [None]

NARRATIVE: CASE EVENT DATE: 20180709
